FAERS Safety Report 5457553-4 (Version None)
Quarter: 2007Q3

REPORT INFORMATION
  Report Type: 
  Country: None (occurrence: None)
  Receive Date: 20070918
  Receipt Date: 20070906
  Transmission Date: 20080115
  Serious: Yes (Other)
  Sender: FDA-Public Use
  Company Number: US-PFIZER INC-2007074912

PATIENT
  Sex: Female
  Weight: 126.81 kg

DRUGS (4)
  1. CHANTIX [Suspect]
     Indication: SMOKING CESSATION THERAPY
  2. TEGRETOL [Interacting]
     Indication: CONVULSION
  3. DILANTIN [Concomitant]
  4. ALL OTHER THERAPEUTIC PRODUCTS [Concomitant]

REACTIONS (6)
  - BLOOD GLUCOSE ABNORMAL [None]
  - DRUG INTERACTION [None]
  - DRUG LEVEL CHANGED [None]
  - DYSPHONIA [None]
  - GAIT DISTURBANCE [None]
  - SPEECH DISORDER [None]
